FAERS Safety Report 25061709 (Version 1)
Quarter: 2025Q1

REPORT INFORMATION
  Report Type: Spontaneous
  Country: US (occurrence: US)
  Receive Date: 20250311
  Receipt Date: 20250311
  Transmission Date: 20250409
  Serious: No
  Sender: Kenvue
  Company Number: US-KENVUE-20250203990

PATIENT
  Age: 34 Year
  Sex: Male

DRUGS (1)
  1. MENS ROGAINE EXTRA STRENGTH [Suspect]
     Active Substance: MINOXIDIL
     Indication: Alopecia
     Dosage: 1/2 CAP , ONCE A DAY
     Route: 065
     Dates: start: 20241112

REACTIONS (3)
  - Product package associated injury [Unknown]
  - Inappropriate schedule of product administration [Unknown]
  - Product packaging issue [Unknown]

NARRATIVE: CASE EVENT DATE: 20241112
